FAERS Safety Report 16328644 (Version 1)
Quarter: 2019Q2

REPORT INFORMATION
  Report Type: Spontaneous
  Country: US (occurrence: US)
  Receive Date: 20190518
  Receipt Date: 20190518
  Transmission Date: 20190711
  Serious: Yes (Other)
  Sender: FDA-Public Use
  Company Number: PHEH2019US021439

PATIENT
  Sex: Female

DRUGS (1)
  1. TASIGNA [Suspect]
     Active Substance: NILOTINIB
     Indication: CHRONIC MYELOID LEUKAEMIA
     Dosage: 1 DF, BID
     Route: 048

REACTIONS (19)
  - Diverticulum [Unknown]
  - Stomatitis [Unknown]
  - Mucosal inflammation [Unknown]
  - Glossitis [Unknown]
  - Pain [Unknown]
  - Bursitis [Unknown]
  - Lower respiratory tract infection [Unknown]
  - Rash [Unknown]
  - Cerebrovascular accident [Unknown]
  - Asthma [Unknown]
  - Seborrhoeic dermatitis [Unknown]
  - Tooth infection [Unknown]
  - Urinary tract infection [Unknown]
  - Skin papilloma [Unknown]
  - Fatigue [Unknown]
  - Peripheral arterial occlusive disease [Unknown]
  - Insomnia [Unknown]
  - Rhinitis allergic [Unknown]
  - Hyperlipidaemia [Unknown]
